FAERS Safety Report 7541594-7 (Version None)
Quarter: 2011Q2

REPORT INFORMATION
  Report Type: 
  Country: None (occurrence: None)
  Receive Date: 20110613
  Receipt Date: 20110608
  Transmission Date: 20111010
  Serious: Yes (Other)
  Sender: FDA-Public Use
  Company Number: BR-ELI_LILLY_AND_COMPANY-BR201106002646

PATIENT

DRUGS (2)
  1. ZYPREXA [Suspect]
     Indication: BIPOLAR DISORDER
     Dosage: 10 MG, EACH EVENING
     Route: 048
  2. CLONAZEPAM [Concomitant]
     Indication: INSOMNIA
     Dosage: UNK UNK, EACH EVENING
     Route: 065

REACTIONS (2)
  - INSOMNIA [None]
  - DECREASED INTEREST [None]
